FAERS Safety Report 25663856 (Version 1)
Quarter: 2025Q3

REPORT INFORMATION
  Report Type: Spontaneous
  Country: IN (occurrence: IN)
  Receive Date: 20250811
  Receipt Date: 20250811
  Transmission Date: 20251020
  Serious: Yes (Hospitalization, Other)
  Sender: ZYDUS PHARM
  Company Number: IN-ZYDUS-IN-ZYDUS-126898

PATIENT

DRUGS (1)
  1. METHOTREXATE [Suspect]
     Active Substance: METHOTREXATE
     Indication: Rheumatoid arthritis
     Route: 065

REACTIONS (6)
  - Febrile neutropenia [Unknown]
  - Pancytopenia [Unknown]
  - Ulcer [Unknown]
  - Toxicity to various agents [Unknown]
  - Poisoning [Unknown]
  - Overdose [Unknown]
